FAERS Safety Report 6692056-0 (Version None)
Quarter: 2010Q2

REPORT INFORMATION
  Report Type: 
  Country: None (occurrence: None)
  Receive Date: 20100422
  Receipt Date: 20100414
  Transmission Date: 20101027
  Serious: Yes (Other)
  Sender: FDA-Public Use
  Company Number: JP-BRISTOL-MYERS SQUIBB COMPANY-15036296

PATIENT
  Age: 66 Year
  Sex: Female

DRUGS (2)
  1. BARACLUDE [Suspect]
     Indication: HEPATITIS B
     Route: 048
     Dates: end: 20100224
  2. ADEFOVIR DIPIVOXIL KIT [Concomitant]
     Dates: start: 20090101

REACTIONS (3)
  - PLATELET COUNT DECREASED [None]
  - VIROLOGIC FAILURE [None]
  - WHITE BLOOD CELL COUNT DECREASED [None]
